FAERS Safety Report 17741013 (Version 2)
Quarter: 2020Q2

REPORT INFORMATION
  Report Type: Report from Study
  Country: CA (occurrence: CA)
  Receive Date: 20200504
  Receipt Date: 20200507
  Transmission Date: 20200714
  Serious: Yes (Other)
  Sender: FDA-Public Use
  Company Number: PHHY2017CA147088

PATIENT
  Age: 43 Year
  Sex: Female

DRUGS (5)
  1. SANDOSTATIN LAR DEPOT [Suspect]
     Active Substance: OCTREOTIDE ACETATE
     Indication: CARCINOID TUMOUR
     Dosage: 30 MG, QMO (EVERY 4 WEEKS)
     Route: 030
     Dates: start: 20171102
  2. SANDOSTATIN [Suspect]
     Active Substance: OCTREOTIDE ACETATE
     Indication: DIARRHOEA
  3. SANDOSTATIN [Suspect]
     Active Substance: OCTREOTIDE ACETATE
     Indication: CARCINOID SYNDROME
     Dosage: 100 UG, TID
     Route: 058
     Dates: start: 20170927
  4. SANDOSTATIN [Suspect]
     Active Substance: OCTREOTIDE ACETATE
     Indication: FLUSHING
  5. GRAVOL [Concomitant]
     Active Substance: DIMENHYDRINATE
     Indication: PRODUCT USED FOR UNKNOWN INDICATION
     Dosage: UNK
     Route: 065

REACTIONS (12)
  - Abdominal hernia [Unknown]
  - Blood pressure decreased [Unknown]
  - Nausea [Unknown]
  - Malaise [Unknown]
  - Gastrointestinal sounds abnormal [Unknown]
  - Blood pressure increased [Unknown]
  - Abdominal distension [Unknown]
  - Abdominal pain [Unknown]
  - Body temperature decreased [Unknown]
  - Migraine [Unknown]
  - Metastases to peritoneum [Unknown]
  - Fatigue [Unknown]

NARRATIVE: CASE EVENT DATE: 2018
